FAERS Safety Report 13737107 (Version 1)
Quarter: 2017Q3

REPORT INFORMATION
  Report Type: Spontaneous
  Country: IE (occurrence: IE)
  Receive Date: 20170710
  Receipt Date: 20170710
  Transmission Date: 20171127
  Serious: Yes (Other)
  Sender: FDA-Public Use
  Company Number: IE-JNJFOC-20160422874

PATIENT
  Age: 39 Year
  Sex: Female

DRUGS (9)
  1. PENTASA [Concomitant]
     Active Substance: MESALAMINE
     Indication: COLITIS ULCERATIVE
     Route: 048
     Dates: start: 201508
  2. CALCITONIN [Concomitant]
     Active Substance: CALCITONIN
     Indication: OSTEOPOROSIS
     Route: 048
     Dates: start: 201508
  3. REMICADE [Suspect]
     Active Substance: INFLIXIMAB
     Indication: COLITIS ULCERATIVE
     Route: 042
     Dates: start: 20160205, end: 201607
  4. PARACETAMOL [Concomitant]
     Active Substance: ACETAMINOPHEN
     Route: 065
     Dates: start: 20160907, end: 20160907
  5. REMICADE [Suspect]
     Active Substance: INFLIXIMAB
     Indication: CROHN^S DISEASE
     Route: 042
     Dates: start: 20160205, end: 201607
  6. REMICADE [Suspect]
     Active Substance: INFLIXIMAB
     Indication: COLITIS ULCERATIVE
     Route: 042
     Dates: start: 201508
  7. CEFUROXIME. [Concomitant]
     Active Substance: CEFUROXIME
     Route: 042
     Dates: start: 20160907, end: 20160907
  8. REMICADE [Suspect]
     Active Substance: INFLIXIMAB
     Indication: CROHN^S DISEASE
     Route: 042
     Dates: start: 201508
  9. DICLOFENAC [Concomitant]
     Active Substance: DICLOFENAC
     Route: 065
     Dates: start: 20160907, end: 20160907

REACTIONS (2)
  - Caesarean section [Unknown]
  - Exposure during pregnancy [Recovered/Resolved]

NARRATIVE: CASE EVENT DATE: 2015
